FAERS Safety Report 16484316 (Version 1)
Quarter: 2019Q3

REPORT INFORMATION
  Report Type: Spontaneous
  Country: US (occurrence: US)
  Receive Date: 20190625
  Receipt Date: 20190625
  Transmission Date: 20191004
  Serious: No
  Sender: FDA-Public Use
  Company Number: None

PATIENT
  Age: 63 Year
  Sex: Female
  Weight: 94.5 kg

DRUGS (6)
  1. FARXIGA [Concomitant]
     Active Substance: DAPAGLIFLOZIN PROPANEDIOL
  2. OZEMPIC [Suspect]
     Active Substance: SEMAGLUTIDE
     Indication: GLYCOSYLATED HAEMOGLOBIN INCREASED
     Dosage: ?          QUANTITY:1 INJECTION(S);OTHER FREQUENCY:1/WEEK;?
     Route: 058
     Dates: start: 20190610, end: 20190621
  3. LOSARTAN. [Concomitant]
     Active Substance: LOSARTAN
  4. METAPROLOL ER SUCCINATE [Concomitant]
  5. AMLODIPINE [Concomitant]
     Active Substance: AMLODIPINE BESYLATE
  6. VITAFUSION MULTIVITES VITAMINS [Concomitant]

REACTIONS (7)
  - Abdominal discomfort [None]
  - Constipation [None]
  - Asthenia [None]
  - Taste disorder [None]
  - Decreased appetite [None]
  - Dizziness [None]
  - Lethargy [None]

NARRATIVE: CASE EVENT DATE: 20190610
